FAERS Safety Report 7738412-0 (Version None)
Quarter: 2011Q3

REPORT INFORMATION
  Report Type: 
  Country: None (occurrence: None)
  Receive Date: 20110908
  Receipt Date: 20110825
  Transmission Date: 20111222
  Serious: Yes (Hospitalization, Disabling, Other)
  Sender: FDA-Public Use
  Company Number: PHHY2011BR47580

PATIENT
  Sex: Male

DRUGS (2)
  1. DIOVAN [Suspect]
     Indication: HYPERTENSION
     Dosage: 160 MG (2 TABLETS OF 80MG) DAILY, UNK
     Route: 048
     Dates: start: 20080101
  2. DIOVAN [Suspect]
     Dosage: 160 MG (2 TABLETS OF 80MG DAILY), UNK
     Dates: start: 20110101

REACTIONS (4)
  - ARTHROPATHY [None]
  - PAIN [None]
  - GAIT DISTURBANCE [None]
  - LIMB INJURY [None]
